FAERS Safety Report 7674937-4 (Version None)
Quarter: 2011Q3

REPORT INFORMATION
  Report Type: 
  Country: None (occurrence: None)
  Receive Date: 20110810
  Receipt Date: 20110729
  Transmission Date: 20111222
  Serious: Yes (Hospitalization)
  Sender: FDA-Public Use
  Company Number: BR-BAUSCH-2011BL005113

PATIENT
  Age: 63 Year
  Sex: Female

DRUGS (1)
  1. DORZOLAMIDE HCL AND TIMOLOL MALEATE [Suspect]
     Indication: GLAUCOMA
     Route: 047

REACTIONS (2)
  - THROMBOCYTOPENIA [None]
  - PARAPSORIASIS [None]
